FAERS Safety Report 9114301 (Version 3)
Quarter: 2014Q1

REPORT INFORMATION
  Report Type: Spontaneous
  Country: US (occurrence: US)
  Receive Date: 20130208
  Receipt Date: 20140108
  Transmission Date: 20141002
  Serious: No
  Sender: FDA-Public Use
  Company Number: US-009507513-1302USA003506

PATIENT
  Age: 74 Year
  Sex: Female

DRUGS (3)
  1. MIRALAX [Suspect]
     Indication: MEDICAL OBSERVATION
     Dosage: UNK, TID
     Route: 048
     Dates: start: 201303, end: 201304
  2. MIRALAX [Suspect]
     Indication: CONSTIPATION
  3. HYDROCODONE [Concomitant]
     Indication: NEUROPATHY PERIPHERAL
     Dosage: 3 TO 4 DF, QD

REACTIONS (4)
  - Faecal incontinence [Unknown]
  - Drug effect decreased [Unknown]
  - Inappropriate schedule of drug administration [Unknown]
  - Underdose [Unknown]
